FAERS Safety Report 8578582 (Version 3)
Quarter: 2013Q2

REPORT INFORMATION
  Report Type: Spontaneous
  Country: US (occurrence: US)
  Receive Date: 20120524
  Receipt Date: 20130613
  Transmission Date: 20140414
  Serious: Yes (Hospitalization)
  Sender: FDA-Public Use
  Company Number: US-ELI_LILLY_AND_COMPANY-US201205005315

PATIENT
  Sex: Female

DRUGS (4)
  1. FORTEO [Suspect]
     Indication: OSTEOPOROSIS
     Dosage: 20 UG, QD
     Route: 065
     Dates: start: 20120113, end: 20120224
  2. FORTEO [Suspect]
     Dosage: 20 UG, QD
     Route: 065
     Dates: start: 20120225
  3. CALCIUM [Concomitant]
  4. VITAMIN D NOS [Concomitant]

REACTIONS (5)
  - Gallbladder disorder [Recovered/Resolved]
  - Fall [Unknown]
  - Muscle spasms [Recovered/Resolved]
  - Hand fracture [Unknown]
  - Fall [Unknown]
